FAERS Safety Report 4720355-8 (Version None)
Quarter: 2005Q3

REPORT INFORMATION
  Report Type: 
  Country: None (occurrence: None)
  Receive Date: 20050719
  Receipt Date: 20050630
  Transmission Date: 20060218
  Serious: Yes (Hospitalization, Disabling, Other)
  Sender: FDA-Public Use
  Company Number: USA0506101699

PATIENT
  Age: 55 Year
  Sex: Female

DRUGS (1)
  1. HUMULIN R [Suspect]

REACTIONS (5)
  - BLOOD GLUCOSE DECREASED [None]
  - BRAIN DAMAGE [None]
  - HYPOPNOEA [None]
  - LOSS OF CONSCIOUSNESS [None]
  - PNEUMONIA ASPIRATION [None]
